FAERS Safety Report 4790155-1 (Version None)
Quarter: 2005Q4

REPORT INFORMATION
  Report Type: 
  Country: None (occurrence: None)
  Receive Date: 20051005
  Receipt Date: 20051005
  Transmission Date: 20060501
  Serious: Yes (Hospitalization)
  Sender: FDA-Public Use
  Company Number: None

PATIENT
  Age: 53 Year
  Sex: Female
  Weight: 47.5 kg

DRUGS (21)
  1. MITOXANTRONE [Suspect]
     Indication: ACUTE MYELOID LEUKAEMIA RECURRENT
     Dosage: 12 MG IV
     Route: 042
     Dates: start: 20050624
  2. MITOXANTRONE [Suspect]
     Indication: ACUTE MYELOID LEUKAEMIA RECURRENT
     Dosage: 12 MG IV
     Route: 042
     Dates: start: 20050625
  3. MITOXANTRONE [Suspect]
     Indication: ACUTE MYELOID LEUKAEMIA RECURRENT
     Dosage: 12 MG IV
     Route: 042
     Dates: start: 20050626
  4. MITOXANTRONE [Suspect]
     Indication: ACUTE MYELOID LEUKAEMIA RECURRENT
     Dosage: 12 MG IV
     Route: 042
     Dates: start: 20050629
  5. MITOXANTRONE [Suspect]
     Indication: ACUTE MYELOID LEUKAEMIA RECURRENT
     Dosage: 12 MG IV
     Route: 042
     Dates: start: 20050630
  6. ETOPOSIDE [Suspect]
     Dosage: 145 MG IV
     Route: 042
     Dates: start: 20050624
  7. ETOPOSIDE [Suspect]
     Dosage: 145 MG IV
     Route: 042
     Dates: start: 20050625
  8. ETOPOSIDE [Suspect]
     Dosage: 145 MG IV
     Route: 042
     Dates: start: 20050626
  9. ETOPOSIDE [Suspect]
     Dosage: 145 MG IV
     Route: 042
     Dates: start: 20050629
  10. ETOPOSIDE [Suspect]
     Dosage: 145 MG IV
     Route: 042
     Dates: start: 20050630
  11. CEFEPIME [Concomitant]
  12. DEXAMETHASONE [Concomitant]
  13. DIATRIZOATE MEGLUMINE [Concomitant]
  14. MEGLUMINE [Concomitant]
  15. DIPHENHYDRAMINE HCL [Concomitant]
  16. ENALAPRIL [Concomitant]
  17. LANSOPRAZOLE [Concomitant]
  18. LORAZEPAM [Concomitant]
  19. PAROXETINE HCL [Concomitant]
  20. POTASSIUM CHLORIDE [Concomitant]
  21. ONDANSETRON [Concomitant]

REACTIONS (1)
  - BLOOD BILIRUBIN INCREASED [None]
